FAERS Safety Report 15857283 (Version 4)
Quarter: 2019Q2

REPORT INFORMATION
  Report Type: Spontaneous
  Country: US (occurrence: US)
  Receive Date: 20190123
  Receipt Date: 20190503
  Transmission Date: 20190711
  Serious: No
  Sender: FDA-Public Use
  Company Number: US-BAYER-2019-017060

PATIENT
  Age: 26 Year
  Sex: Female
  Weight: 69.9 kg

DRUGS (2)
  1. SKYLA [Suspect]
     Active Substance: LEVONORGESTREL
     Indication: CONTRACEPTION
     Dosage: 14 MCG/24HR, CONT
     Route: 015
     Dates: start: 20180425, end: 20190107
  2. MISOPROSTOL. [Concomitant]
     Active Substance: MISOPROSTOL

REACTIONS (3)
  - Device expulsion [Recovered/Resolved]
  - Irritable bowel syndrome [None]
  - Menorrhagia [None]

NARRATIVE: CASE EVENT DATE: 20190107
